FAERS Safety Report 6135526-6 (Version None)
Quarter: 2009Q1

REPORT INFORMATION
  Report Type: 
  Country: None (occurrence: None)
  Receive Date: 20090327
  Receipt Date: 20090323
  Transmission Date: 20090719
  Serious: Yes (Other)
  Sender: FDA-Public Use
  Company Number: B0566300A

PATIENT
  Age: 25 Year
  Sex: Female

DRUGS (2)
  1. RELENZA [Suspect]
     Indication: INFLUENZA
     Dosage: 10MG TWICE PER DAY
     Route: 055
     Dates: start: 20090105
  2. CALONAL [Concomitant]
     Route: 065
     Dates: start: 20090105

REACTIONS (6)
  - AFFECT LABILITY [None]
  - DECREASED APPETITE [None]
  - DEPRESSION [None]
  - MEMORY IMPAIRMENT [None]
  - NASOPHARYNGITIS [None]
  - WEIGHT DECREASED [None]
